FAERS Safety Report 5789201-8 (Version None)
Quarter: 2008Q2

REPORT INFORMATION
  Report Type: 
  Country: None (occurrence: None)
  Receive Date: 20080626
  Receipt Date: 20080415
  Transmission Date: 20081010
  Serious: No
  Sender: FDA-Public Use
  Company Number: PR-BAYER-200820207NA

PATIENT
  Age: 51 Year
  Sex: Female

DRUGS (3)
  1. AVELOX [Suspect]
     Indication: DRUG USE FOR UNKNOWN INDICATION
     Dosage: TOTAL DAILY DOSE: 400 MG  UNIT DOSE: 400 MG
     Route: 048
     Dates: start: 20080408
  2. ALBUTEROL [Concomitant]
  3. GUAIFENESIN/DEXTROMETHORPHAN [Concomitant]

REACTIONS (4)
  - HYPERSENSITIVITY [None]
  - PRURITUS GENERALISED [None]
  - RASH [None]
  - RASH ERYTHEMATOUS [None]
